FAERS Safety Report 7176850-8 (Version None)
Quarter: 2010Q4

REPORT INFORMATION
  Report Type: 
  Country: None (occurrence: None)
  Receive Date: 20101220
  Receipt Date: 20101215
  Transmission Date: 20110411
  Serious: Yes (Hospitalization)
  Sender: FDA-Public Use
  Company Number: US-BRISTOL-MYERS SQUIBB COMPANY-14944425

PATIENT
  Age: 44 Year
  Sex: Female
  Weight: 100 kg

DRUGS (3)
  1. ERBITUX [Suspect]
     Indication: CERVIX CARCINOMA
     Dosage: LAST COURSE DATE:04JAN2010
     Dates: start: 20091201
  2. CISPLATIN [Suspect]
     Indication: CERVIX CARCINOMA
     Dosage: LAST COURSE DATE:04JAN2010
     Dates: start: 20091201
  3. RADIATION THERAPY [Suspect]
     Indication: CERVIX CARCINOMA
     Dosage: EXTENDED FIELD RADIATION: PELVIS AND PARA-AORTICS HDR 3000CGY

REACTIONS (4)
  - HAEMOGLOBIN DECREASED [None]
  - HYPONATRAEMIA [None]
  - PYREXIA [None]
  - WOUND INFECTION [None]
